FAERS Safety Report 4645705-2 (Version None)
Quarter: 2005Q2

REPORT INFORMATION
  Report Type: 
  Country: None (occurrence: None)
  Receive Date: 20050425
  Receipt Date: 20050411
  Transmission Date: 20051028
  Serious: Yes (Disabling, Other)
  Sender: FDA-Public Use
  Company Number: 2005048499

PATIENT
  Age: 78 Year
  Sex: Female
  Weight: 72 kg

DRUGS (13)
  1. LIPITOR [Suspect]
     Indication: HYPERCHOLESTEROLAEMIA
     Dosage: 40 MG (DAILY), ORAL
     Route: 048
     Dates: start: 20030220, end: 20041012
  2. PREDNISONE [Concomitant]
  3. ALL OTHER THERAPEUTIC PRODUCTS (ALL OTHER THERAPEUTIC PRODUCTS) [Concomitant]
  4. BETAMETHASONE [Concomitant]
  5. INDAPAMIDE [Concomitant]
  6. BETAMETHASONE DIPROPIONATE (BETAMETHASONE DIPROPIONATE) [Concomitant]
  7. OXYBUTYNIN CHLORIDE [Concomitant]
  8. CHLOROXYLENOL (CHLOROXYLENOL) [Concomitant]
  9. TOLTERODINE TARTRATE [Concomitant]
  10. ACETAMINOPHEN [Concomitant]
  11. LEVOTHYROXINE SODIUM [Concomitant]
  12. ESTRADIOL [Concomitant]
  13. LATANOPROST [Concomitant]

REACTIONS (5)
  - FALL [None]
  - FATIGUE [None]
  - LIVER FUNCTION TEST ABNORMAL [None]
  - MUSCULAR WEAKNESS [None]
  - MYOSITIS [None]
